FAERS Safety Report 5714153-6 (Version None)
Quarter: 2008Q2

REPORT INFORMATION
  Report Type: 
  Country: None (occurrence: None)
  Receive Date: 20080421
  Receipt Date: 20080409
  Transmission Date: 20081010
  Serious: Yes (Hospitalization)
  Sender: FDA-Public Use
  Company Number: 2008-01027

PATIENT
  Age: 81 Year
  Sex: Female
  Weight: 72 kg

DRUGS (2)
  1. VELCADE [Suspect]
     Indication: MULTIPLE MYELOMA
     Dosage: 2.1 MG, INTRAVENOUS
     Route: 042
     Dates: start: 20080121, end: 20080310
  2. DEXAMETHASONE TAB [Suspect]
     Indication: MULTIPLE MYELOMA
     Dosage: 40 MG, ORAL
     Route: 048
     Dates: start: 20080121, end: 20080314

REACTIONS (18)
  - ABDOMINAL PAIN [None]
  - ASTHENIA [None]
  - CANDIDIASIS [None]
  - COGNITIVE DISORDER [None]
  - CONSTIPATION [None]
  - DIARRHOEA [None]
  - EMPHYSEMATOUS CYSTITIS [None]
  - GINGIVAL BLEEDING [None]
  - HAEMATOMA [None]
  - HYPERGLYCAEMIA [None]
  - ILEUS PARALYTIC [None]
  - ILL-DEFINED DISORDER [None]
  - INFECTION [None]
  - MUCOSAL INFLAMMATION [None]
  - MUSCULAR WEAKNESS [None]
  - SKIN DISORDER [None]
  - THROMBOCYTOPENIA [None]
  - VOMITING [None]
